FAERS Safety Report 9475307 (Version 1)
Quarter: 2013Q3

REPORT INFORMATION
  Report Type: Spontaneous
  Country: DE (occurrence: None)
  Receive Date: 20130820
  Receipt Date: 20130820
  Transmission Date: 20140515
  Serious: Yes (Hospitalization, Congenital Anomaly, Other)
  Sender: FDA-Public Use
  Company Number: AUR-APL-2013-06706

PATIENT
  Age: 1 Day
  Sex: Male
  Weight: 2.8 kg

DRUGS (2)
  1. MIRTAZAPINE [Suspect]
     Indication: DEPRESSION
     Route: 064
  2. FOLSAN (FOLIC ACID) [Concomitant]

REACTIONS (8)
  - Foetal exposure during pregnancy [None]
  - Congenital diaphragmatic hernia [None]
  - Hypospadias [None]
  - Cryptorchism [None]
  - Inguinal hernia [None]
  - Patent ductus arteriosus [None]
  - Small for dates baby [None]
  - Maternal drugs affecting foetus [None]
